FAERS Safety Report 4624422-9 (Version None)
Quarter: 2005Q1

REPORT INFORMATION
  Report Type: 
  Country: None (occurrence: None)
  Receive Date: 20050330
  Receipt Date: 20050330
  Transmission Date: 20050727
  Serious: Yes (Hospitalization)
  Sender: FDA-Public Use
  Company Number: None

PATIENT
  Sex: Male
  Weight: 70.7 kg

DRUGS (1)
  1. ABCIXIMAB [Suspect]
     Dosage: 0.25 MCG/KG X 12 H INTRAVENOUS
     Route: 042

REACTIONS (1)
  - THROMBOCYTOPENIA [None]
